FAERS Safety Report 15056663 (Version 3)
Quarter: 2018Q4

REPORT INFORMATION
  Report Type: Spontaneous
  Country: US (occurrence: US)
  Receive Date: 20180623
  Receipt Date: 20181218
  Transmission Date: 20190204
  Serious: Yes (Disabling)
  Sender: FDA-Public Use
  Company Number: US-OTSUKA-2018_015697

PATIENT
  Age: 70 Year
  Sex: Female

DRUGS (4)
  1. ARIPIPRAZOLE. [Concomitant]
     Active Substance: ARIPIPRAZOLE
     Indication: PRODUCT USED FOR UNKNOWN INDICATION
     Dosage: UNK
     Route: 065
     Dates: start: 20150707, end: 20161026
  2. ABILIFY [Suspect]
     Active Substance: ARIPIPRAZOLE
     Dosage: 4 MG, QD
     Route: 048
  3. ABILIFY [Suspect]
     Active Substance: ARIPIPRAZOLE
     Indication: MAJOR DEPRESSION
     Dosage: 2 MG, QD
     Route: 065
     Dates: start: 201505
  4. ABILIFY [Suspect]
     Active Substance: ARIPIPRAZOLE
     Dosage: 20 MG, QD
     Route: 065
     Dates: end: 201702

REACTIONS (36)
  - Chronic obstructive pulmonary disease [Unknown]
  - Rheumatoid arthritis [Unknown]
  - Neck pain [Unknown]
  - Blood chloride decreased [Unknown]
  - Impulse-control disorder [Unknown]
  - Anhedonia [Unknown]
  - Drug dependence [Unknown]
  - Haemoglobin decreased [Unknown]
  - Blood triglycerides increased [Unknown]
  - Compulsive shopping [Recovered/Resolved]
  - Anxiety [Unknown]
  - Injury [Unknown]
  - Mental impairment [Unknown]
  - Osteoarthritis [Unknown]
  - Condition aggravated [Recovering/Resolving]
  - Fibromyalgia [Unknown]
  - Arthritis [Unknown]
  - Social problem [Unknown]
  - Nicotine dependence [Unknown]
  - Emotional distress [Unknown]
  - Blood bilirubin decreased [Unknown]
  - Iron deficiency anaemia [Unknown]
  - Eating disorder [Recovered/Resolved]
  - Gastrooesophageal reflux disease [Unknown]
  - Arthralgia [Unknown]
  - Pain [Unknown]
  - Migraine [Unknown]
  - Panic attack [Unknown]
  - Personal relationship issue [Unknown]
  - Disability [Unknown]
  - Mean cell haemoglobin decreased [Unknown]
  - Hyperlipidaemia [Unknown]
  - Urinary incontinence [Unknown]
  - Gambling disorder [Recovered/Resolved]
  - Bankruptcy [Unknown]
  - Economic problem [Unknown]

NARRATIVE: CASE EVENT DATE: 201505
